FAERS Safety Report 7624989-2 (Version None)
Quarter: 2011Q3

REPORT INFORMATION
  Report Type: 
  Country: None (occurrence: None)
  Receive Date: 20110721
  Receipt Date: 20110712
  Transmission Date: 20111222
  Serious: Yes (Hospitalization)
  Sender: FDA-Public Use
  Company Number: US-BIOGENIDEC-2009BI016755

PATIENT
  Age: 42 Year
  Sex: Female

DRUGS (3)
  1. COLACE [Concomitant]
     Indication: PRODUCT USED FOR UNKNOWN INDICATION
  2. AVONEX [Suspect]
     Indication: MULTIPLE SCLEROSIS
     Route: 030
     Dates: start: 20031007
  3. FLOMAX [Concomitant]
     Indication: PRODUCT USED FOR UNKNOWN INDICATION

REACTIONS (8)
  - INJECTION SITE HAEMORRHAGE [None]
  - MUSCLE ATROPHY [None]
  - NIGHT SWEATS [None]
  - CARDIAC FAILURE CONGESTIVE [None]
  - VISUAL FIELD DEFECT [None]
  - AORTIC STENOSIS [None]
  - ATRIAL SEPTAL DEFECT REPAIR [None]
  - PYREXIA [None]
